FAERS Safety Report 7371469-8 (Version None)
Quarter: 2011Q1

REPORT INFORMATION
  Report Type: 
  Country: None (occurrence: None)
  Receive Date: 20110324
  Receipt Date: 20110321
  Transmission Date: 20110831
  Serious: Yes (Hospitalization)
  Sender: FDA-Public Use
  Company Number: FR-BRISTOL-MYERS SQUIBB COMPANY-15620669

PATIENT
  Age: 52 Year
  Sex: Male
  Weight: 46 kg

DRUGS (3)
  1. CETUXIMAB [Suspect]
     Indication: HEAD AND NECK CANCER
     Dosage: RECENT INFUSION : 30AUG2010, TOTAL INFUSION : 4,CETUXIMAB 5MG/ML
     Route: 042
     Dates: start: 20100810, end: 20100830
  2. 5-FLUOROURACIL [Suspect]
     Indication: HEAD AND NECK CANCER
     Dosage: RECENT INFUSION : 30AUG2010, TOTAL INFUSION : 2
     Route: 042
     Dates: start: 20100810
  3. CISPLATIN [Suspect]
     Indication: HEAD AND NECK CANCER
     Dosage: RECENT INFUSION : 30AUG2010, TOTAL INFUSION : 2
     Route: 042
     Dates: start: 20100810

REACTIONS (1)
  - ORTHOSTATIC HYPOTENSION [None]
